FAERS Safety Report 5782162-7 (Version None)
Quarter: 2008Q2

REPORT INFORMATION
  Report Type: 
  Country: None (occurrence: None)
  Receive Date: 20080618
  Receipt Date: 20080604
  Transmission Date: 20081010
  Serious: Yes (Other)
  Sender: FDA-Public Use
  Company Number: CERZ-1000243

PATIENT
  Age: 56 Year
  Sex: Male
  Weight: 83 kg

DRUGS (4)
  1. CEREZYME [Suspect]
     Indication: GAUCHER'S DISEASE
     Dosage: 2400 , Q2W, INTRAVENOUS
     Route: 042
     Dates: start: 20020101
  2. ALDACTONE [Concomitant]
  3. METFORMINE (METFORMIN HYDROCHLORIDE) [Concomitant]
  4. SPIRONOLACTONE [Concomitant]

REACTIONS (5)
  - HEPATIC CIRRHOSIS [None]
  - HIP ARTHROPLASTY [None]
  - OESOPHAGEAL VARICES HAEMORRHAGE [None]
  - PANCYTOPENIA [None]
  - SPLENOMEGALY [None]
